FAERS Safety Report 22645463 (Version 1)
Quarter: 2023Q2

REPORT INFORMATION
  Report Type: Spontaneous
  Country: CN (occurrence: CN)
  Receive Date: 20230627
  Receipt Date: 20230627
  Transmission Date: 20230722
  Serious: Yes (Other)
  Sender: FDA-Public Use
  Company Number: CN-AMGEN-CHNSP2023108685

PATIENT

DRUGS (1)
  1. XGEVA [Suspect]
     Active Substance: DENOSUMAB
     Indication: Bone giant cell tumour
     Dosage: 120 MILLIGRAM, ON DAYS 1, 8, 15, AND 29
     Route: 058

REACTIONS (5)
  - Bone giant cell tumour [Unknown]
  - Deep vein thrombosis postoperative [Recovered/Resolved]
  - Fracture [Recovered/Resolved]
  - Postoperative wound infection [Recovered/Resolved]
  - Post procedural complication [Recovered/Resolved]
